FAERS Safety Report 6536060-1 (Version None)
Quarter: 2010Q1

REPORT INFORMATION
  Report Type: 
  Country: None (occurrence: None)
  Receive Date: 20100113
  Receipt Date: 20090929
  Transmission Date: 20100710
  Serious: No
  Sender: FDA-Public Use
  Company Number: US-ALLERGAN-0913518US

PATIENT
  Sex: Female

DRUGS (3)
  1. LATISSE [Suspect]
     Indication: HYPOTRICHOSIS
     Dosage: QHS
     Route: 061
  2. MASCARA [Concomitant]
     Dosage: UNK
  3. EYELINER [Concomitant]
     Dosage: UNK

REACTIONS (1)
  - MADAROSIS [None]
